FAERS Safety Report 17455643 (Version 2)
Quarter: 2021Q3

REPORT INFORMATION
  Report Type: Spontaneous
  Country: GB (occurrence: GB)
  Receive Date: 20200225
  Receipt Date: 20210923
  Transmission Date: 20211014
  Serious: Yes (Life-Threatening, Hospitalization, Other)
  Sender: FDA-Public Use
  Company Number: GB-MYLANLABS-2020M1019979

PATIENT
  Age: 45 Year
  Sex: Female
  Weight: 78 kg

DRUGS (3)
  1. LANSOPRAZOLE. [Concomitant]
     Active Substance: LANSOPRAZOLE
     Dosage: 30 MILLIGRAM, QD(30 MG, 1X/DAY)
  2. SERTRALINE [Suspect]
     Active Substance: SERTRALINE HYDROCHLORIDE
     Indication: DEPRESSION
     Dosage: 100 MILLIGRAM, QD (100 MG, 1X/DAY)
     Dates: start: 201506, end: 20180717
  3. SERTRALINE [Suspect]
     Active Substance: SERTRALINE HYDROCHLORIDE
     Dosage: 200 MILLIGRAM, QD (200 MG, 1X/DAY)
     Route: 065
     Dates: start: 20180717, end: 20180926

REACTIONS (2)
  - Hypersensitivity pneumonitis [Recovering/Resolving]
  - Delirium [Unknown]

NARRATIVE: CASE EVENT DATE: 201603
